FAERS Safety Report 13700007 (Version 1)
Quarter: 2017Q2

REPORT INFORMATION
  Report Type: Spontaneous
  Country: NL (occurrence: NL)
  Receive Date: 20170629
  Receipt Date: 20170629
  Transmission Date: 20170830
  Serious: Yes (Life-Threatening, Hospitalization, Other)
  Sender: FDA-Public Use
  Company Number: NL-GLENMARK PHARMACEUTICALS-2017GMK028019

PATIENT
  Sex: Female

DRUGS (10)
  1. CLOZAPINE. [Suspect]
     Active Substance: CLOZAPINE
     Indication: SCHIZOPHRENIA
     Dosage: 400 MG, QD
     Route: 065
     Dates: start: 2014
  2. FLUPENTIXOL [Concomitant]
     Active Substance: FLUPENTIXOL
     Dosage: 25 MG, QD
     Route: 065
     Dates: start: 201406
  3. FLUOROURACIL. [Suspect]
     Active Substance: FLUOROURACIL
     Indication: BREAST CANCER
     Dosage: UNK, 2 CYCLES
     Route: 065
     Dates: start: 2014, end: 2014
  4. DOCETAXEL. [Suspect]
     Active Substance: DOCETAXEL
     Indication: BREAST CANCER
     Dosage: UNK, 2 CYCLES
     Route: 065
     Dates: start: 2014, end: 2014
  5. TAMOXIFEN [Suspect]
     Active Substance: TAMOXIFEN
     Indication: BREAST CANCER
     Dosage: UNK
     Route: 065
     Dates: start: 2014, end: 2014
  6. CLOZAPINE. [Suspect]
     Active Substance: CLOZAPINE
     Dosage: 700 MG, QD
     Dates: start: 201406, end: 2014
  7. LITHIUM. [Suspect]
     Active Substance: LITHIUM
     Indication: SCHIZOPHRENIA
     Dosage: 800 MG, QD
     Route: 065
     Dates: start: 2014
  8. CYCLOPHOSPHAMIDE. [Suspect]
     Active Substance: CYCLOPHOSPHAMIDE
     Indication: BREAST CANCER
     Dosage: UNK, 2 CYCLES
     Route: 065
     Dates: start: 2014, end: 2014
  9. FLUPENTIXOL [Concomitant]
     Active Substance: FLUPENTIXOL
     Indication: SCHIZOPHRENIA
     Dosage: 20 MG, QD
     Route: 065
     Dates: start: 2012
  10. EPIRUBICIN [Suspect]
     Active Substance: EPIRUBICIN
     Indication: BREAST CANCER
     Dosage: UNK, 2 CYCLES
     Route: 065
     Dates: start: 2014, end: 2014

REACTIONS (3)
  - Neutrophil count decreased [Recovered/Resolved]
  - Congestive cardiomyopathy [Recovering/Resolving]
  - White blood cell count decreased [Recovered/Resolved]

NARRATIVE: CASE EVENT DATE: 2014
